FAERS Safety Report 9784188 (Version 1)
Quarter: 2013Q4

REPORT INFORMATION
  Report Type: Spontaneous
  Country: US (occurrence: US)
  Receive Date: 20131226
  Receipt Date: 20131226
  Transmission Date: 20140711
  Serious: No
  Sender: FDA-Public Use
  Company Number: US-009507513-1312USA005600

PATIENT
  Age: 16 Year
  Sex: Female

DRUGS (6)
  1. PEGINTRON [Suspect]
     Indication: OSTEOSARCOMA
     Dosage: 1 INJECTION WEEKLY
     Dates: start: 201305
  2. LORTAB [Concomitant]
  3. DIAZEPAM [Concomitant]
  4. NORTREL (LEVONORGESTREL) [Concomitant]
  5. IBUPROFEN [Concomitant]
  6. VITAMINS (UNSPECIFIED) [Concomitant]

REACTIONS (5)
  - Pyrexia [Unknown]
  - Fatigue [Unknown]
  - Drug dose omission [Unknown]
  - Product quality issue [Unknown]
  - Off label use [Unknown]
